FAERS Safety Report 15275620 (Version 1)
Quarter: 2018Q3

REPORT INFORMATION
  Report Type: Spontaneous
  Country: US (occurrence: US)
  Receive Date: 20180727
  Receipt Date: 20180727
  Transmission Date: 20181010
  Serious: Yes (Hospitalization)
  Sender: FDA-Public Use
  Company Number: None

PATIENT
  Age: 50 Year
  Sex: Female

DRUGS (10)
  1. IVIG [Suspect]
     Active Substance: HUMAN IMMUNOGLOBULIN G
     Route: 042
     Dates: start: 20170709, end: 20180214
  2. LACTOBACILLUS GRANULES [Concomitant]
  3. METHYLPREDNISOLONE. [Concomitant]
     Active Substance: METHYLPREDNISOLONE
  4. PREDNISONE. [Concomitant]
     Active Substance: PREDNISONE
  5. DIPHENHYDRAMINE. [Concomitant]
     Active Substance: DIPHENHYDRAMINE
  6. CALCIUM [Concomitant]
     Active Substance: CALCIUM
  7. BUPROPION. [Concomitant]
     Active Substance: BUPROPION
  8. FOLIC ACID. [Concomitant]
     Active Substance: FOLIC ACID
  9. METHOTREXATE. [Concomitant]
     Active Substance: METHOTREXATE
  10. SULFAMETHOXAZOLE/TRIMETHOPRIM [Concomitant]
     Active Substance: SULFAMETHOXAZOLE\TRIMETHOPRIM

REACTIONS (2)
  - Chest pain [None]
  - Headache [None]

NARRATIVE: CASE EVENT DATE: 20180214
